FAERS Safety Report 17985213 (Version 1)
Quarter: 2020Q3

REPORT INFORMATION
  Report Type: Spontaneous
  Country: NL (occurrence: NL)
  Receive Date: 20200706
  Receipt Date: 20200706
  Transmission Date: 20201103
  Serious: Yes (Other)
  Sender: FDA-Public Use
  Company Number: NL-TEVA-2020-NL-1795525

PATIENT
  Age: 12 Year
  Sex: Male
  Weight: 27.5 kg

DRUGS (5)
  1. TRAMADOL (DRUPPELS, 100 MG/ML) [Suspect]
     Active Substance: TRAMADOL
     Indication: PROCEDURAL PAIN
     Dosage: 30 MG 3DD
     Dates: start: 20200127, end: 20200129
  2. METRONIDAZOL [Concomitant]
     Active Substance: METRONIDAZOLE
     Dosage: 3 DD 300 MG   THERAPY START DATE AND END DATE : ASKED BUT UNKNOWN
  3. THIAMINE. [Concomitant]
     Active Substance: THIAMINE
     Dosage: 3 DD 25 MG THERAPY START DATE AND END DATE : ASKED BUT UNKNOWN
  4. CEFTRIAXON 2000 MG [Concomitant]
     Dosage: 1 DD THERAPY START DATE AND END DATE : ASKED BUT UNKNOWN
  5. OXYBUTYMINE (1MG/ML [Concomitant]
     Dosage: 3DD  4 MG

REACTIONS (1)
  - Depressed level of consciousness [Recovered/Resolved]

NARRATIVE: CASE EVENT DATE: 20200127
